FAERS Safety Report 8622057 (Version 2)
Quarter: 2013Q2

REPORT INFORMATION
  Report Type: Spontaneous
  Country: US (occurrence: US)
  Receive Date: 20120619
  Receipt Date: 20130408
  Transmission Date: 20140414
  Serious: No
  Sender: FDA-Public Use
  Company Number: US-ASTRAZENECA-2012SE37756

PATIENT
  Age: 59 Year
  Sex: Female

DRUGS (3)
  1. SEROQUEL [Suspect]
     Indication: PANIC DISORDER
     Dosage: ALL AT ONE TIME AT NIGHT
     Route: 048
  2. SEROQUEL [Suspect]
     Indication: PANIC DISORDER
     Route: 048
  3. SEROQUEL [Suspect]
     Indication: PANIC DISORDER
     Route: 048

REACTIONS (4)
  - Anxiety [Unknown]
  - Paranoia [Unknown]
  - Intentional drug misuse [Unknown]
  - Drug dose omission [Unknown]
